FAERS Safety Report 6658720-4 (Version None)
Quarter: 2010Q1

REPORT INFORMATION
  Report Type: 
  Country: None (occurrence: None)
  Receive Date: 20100330
  Receipt Date: 20100322
  Transmission Date: 20100710
  Serious: Yes (Other)
  Sender: FDA-Public Use
  Company Number: PHHY2010US18103

PATIENT
  Sex: Female

DRUGS (8)
  1. ZOMETA [Suspect]
     Indication: MULTIPLE MYELOMA
     Dosage: UNK
  2. PRAVACHOL [Suspect]
  3. NEXIUM [Suspect]
  4. FLEXERIL [Suspect]
     Dosage: UNK
  5. LORCET-HD [Suspect]
  6. SYNTHROID [Suspect]
  7. REVLIMID [Suspect]
  8. VELCADE [Suspect]
     Dosage: UNK

REACTIONS (5)
  - BONE LESION [None]
  - EYE HAEMORRHAGE [None]
  - ORAL DISCOMFORT [None]
  - RIB FRACTURE [None]
  - TOOTH LOSS [None]
